FAERS Safety Report 19180139 (Version 1)
Quarter: 2021Q2

REPORT INFORMATION
  Report Type: Spontaneous
  Country: BR (occurrence: BR)
  Receive Date: 20210426
  Receipt Date: 20210426
  Transmission Date: 20210717
  Serious: Yes (Other)
  Sender: FDA-Public Use
  Company Number: NVSC2021BR089868

PATIENT
  Sex: Male

DRUGS (1)
  1. AZITROMICINA [Suspect]
     Active Substance: AZITHROMYCIN DIHYDRATE
     Indication: PRODUCT USED FOR UNKNOWN INDICATION
     Dosage: UNK
     Route: 065

REACTIONS (9)
  - Syncope [Unknown]
  - Hypersensitivity [Unknown]
  - Hyperhidrosis [Unknown]
  - Dizziness [Unknown]
  - Chills [Unknown]
  - Tremor [Unknown]
  - Vomiting [Unknown]
  - Diarrhoea [Unknown]
  - Monoplegia [Unknown]
